FAERS Safety Report 24400314 (Version 1)
Quarter: 2024Q4

REPORT INFORMATION
  Report Type: Report from Study
  Country: US (occurrence: US)
  Receive Date: 20241005
  Receipt Date: 20241005
  Transmission Date: 20250115
  Serious: Yes (Other)
  Sender: AMGEN
  Company Number: US-AMGEN-USASL2024178872

PATIENT
  Age: 43 Year
  Sex: Female

DRUGS (1)
  1. UPLIZNA [Suspect]
     Active Substance: INEBILIZUMAB-CDON
     Indication: Neuromyelitis optica spectrum disorder
     Dosage: 300 MILLIGRAM, Q6MO, 300 MG IV EVERY 6 MONTHS FOLLOWING 2 LOADING DOSES 2 WEEKS APART
     Route: 042
     Dates: start: 20240821

REACTIONS (2)
  - Pneumonia [Not Recovered/Not Resolved]
  - Sinus disorder [Unknown]

NARRATIVE: CASE EVENT DATE: 20240101
